FAERS Safety Report 8547741 (Version 2)
Quarter: 2012Q4

REPORT INFORMATION
  Report Type: 
  Country: DK (occurrence: DK)
  Receive Date: 20120504
  Receipt Date: 20120830
  Transmission Date: 20130627
  Serious: Yes (Death)
  Sender: FDA-Public Use
  Company Number: DK-B.I. PHARMACEUTICALS,INC./RIDGEFIELD-2012-SW-00374DB

PATIENT
  Age: 76 Year
  Sex: Male

DRUGS (13)
  1. PRADAXA [Suspect]
     Indication: ATRIAL FIBRILLATION
     Dosage: 300 mg
     Route: 048
     Dates: start: 201112, end: 20120228
  2. UNSPECIFIED INGREDIENT [Suspect]
     Indication: THROMBOSIS PROPHYLAXIS
     Dosage: 75 mg
     Route: 048
  3. CORDARONE [Concomitant]
  4. FURIX [Concomitant]
  5. BRICANYL RETARD [Concomitant]
  6. CENTYL MED KALIUMKLORID [Concomitant]
  7. LYRICA [Concomitant]
  8. REMERON [Concomitant]
  9. THEO-DUR [Concomitant]
  10. BONVIVA [Concomitant]
  11. COZAAR [Concomitant]
  12. ELTROXIN [Concomitant]
  13. HALCION [Concomitant]

REACTIONS (1)
  - Gastrointestinal haemorrhage [Fatal]
